FAERS Safety Report 4334168-2 (Version None)
Quarter: 2004Q2

REPORT INFORMATION
  Report Type: 
  Country: None (occurrence: None)
  Receive Date: 20040402
  Receipt Date: 20040324
  Transmission Date: 20050107
  Serious: Yes (Hospitalization)
  Sender: FDA-Public Use
  Company Number: 2004-03-1633

PATIENT

DRUGS (2)
  1. INTRONA (INTERFERON ALFA-2B RECOMBINANT) INJECTABLE  (LIKE INTRON A) [Suspect]
     Indication: METASTATIC RENAL CELL CARCINOMA
     Dosage: SEE IMAGE
     Dates: start: 20040310, end: 20040301
  2. INTRONA (INTERFERON ALFA-2B RECOMBINANT) INJECTABLE  (LIKE INTRON A) [Suspect]
     Indication: METASTATIC RENAL CELL CARCINOMA
     Dosage: SEE IMAGE
     Dates: end: 20040301

REACTIONS (3)
  - ALANINE AMINOTRANSFERASE INCREASED [None]
  - LIVER FUNCTION TEST ABNORMAL [None]
  - PROTHROMBIN TIME PROLONGED [None]
